FAERS Safety Report 11193099 (Version 2)
Quarter: 2015Q3

REPORT INFORMATION
  Report Type: Spontaneous
  Country: BE (occurrence: BE)
  Receive Date: 20150616
  Receipt Date: 20150709
  Transmission Date: 20151125
  Serious: Yes (Other)
  Sender: FDA-Public Use
  Company Number: BE-ASTRAZENECA-2015SE54250

PATIENT
  Age: 10 Year
  Sex: Male
  Weight: 80 kg

DRUGS (7)
  1. PULMICORT TURBUHALER [Suspect]
     Active Substance: BUDESONIDE
     Indication: BRONCHIAL HYPERREACTIVITY
     Route: 055
     Dates: start: 200003, end: 2006
  2. DURACEF [Concomitant]
     Active Substance: CEFADROXIL
  3. PULMICORT TURBUHALER [Suspect]
     Active Substance: BUDESONIDE
     Indication: BRONCHIAL HYPERREACTIVITY
     Route: 055
  4. AUGMENTIN [Concomitant]
     Active Substance: AMOXICILLIN\CLAVULANATE POTASSIUM
  5. VENTOLIN [Concomitant]
     Active Substance: ALBUTEROL SULFATE
  6. CORTICOIDS [Concomitant]
     Active Substance: UNSPECIFIED INGREDIENT
  7. PULMICORT TURBUHALER [Suspect]
     Active Substance: BUDESONIDE
     Indication: BRONCHIAL HYPERREACTIVITY
     Route: 055

REACTIONS (1)
  - Tooth disorder [Not Recovered/Not Resolved]

NARRATIVE: CASE EVENT DATE: 2009
